FAERS Safety Report 10065243 (Version 1)
Quarter: 2014Q2

REPORT INFORMATION
  Report Type: Spontaneous
  Country: BR (occurrence: BR)
  Receive Date: 20140408
  Receipt Date: 20140408
  Transmission Date: 20141212
  Serious: Yes (Other)
  Sender: FDA-Public Use
  Company Number: BR-PFIZER INC-2014095134

PATIENT
  Age: 73 Year
  Sex: Female
  Weight: 72 kg

DRUGS (3)
  1. LYRICA [Suspect]
     Indication: NEUROPATHY PERIPHERAL
     Dosage: 1 TABLET (75MG) IN THE MORNING AND AT NIGHT
     Route: 048
     Dates: start: 201308
  2. ETNA [Concomitant]
     Indication: NEUROPATHY PERIPHERAL
     Dosage: 2 TABLETS IN THE MORNING, 2 TABLETS IN THE AFTERNOON AND 2 TABLETS AT NIGHT
  3. NATRILIX [Concomitant]
     Indication: BLOOD PRESSURE ABNORMAL
     Dosage: 1 PER DAY (UNSPECIFIED DOSAGE)
     Dates: start: 2009

REACTIONS (3)
  - Hip fracture [Unknown]
  - Fall [Unknown]
  - Joint dislocation [Unknown]
